FAERS Safety Report 11800838 (Version 1)
Quarter: 2015Q4

REPORT INFORMATION
  Report Type: Spontaneous
  Country: US (occurrence: US)
  Receive Date: 20151204
  Receipt Date: 20151204
  Transmission Date: 20160305
  Serious: No
  Sender: FDA-Public Use
  Company Number: US-THE MEDICINES COMPANY-US-MDCO-15-00465

PATIENT
  Age: 77 Year
  Sex: Female

DRUGS (1)
  1. ORBACTIV [Suspect]
     Active Substance: ORITAVANCIN
     Indication: LOCALISED INFECTION
     Dosage: NOT REPORTED
     Route: 041
     Dates: start: 20150916

REACTIONS (2)
  - Drug ineffective for unapproved indication [Unknown]
  - No adverse event [Unknown]
